FAERS Safety Report 17371511 (Version 1)
Quarter: 2020Q1

REPORT INFORMATION
  Report Type: Spontaneous
  Country: US (occurrence: US)
  Receive Date: 20200205
  Receipt Date: 20200205
  Transmission Date: 20200409
  Serious: No
  Sender: FDA-Public Use
  Company Number: US-SHIRE-US202003280

PATIENT
  Age: 70 Year
  Sex: Female
  Weight: 108.84 kg

DRUGS (2)
  1. TRULANCE [Concomitant]
     Active Substance: PLECANATIDE
     Indication: PRODUCT USED FOR UNKNOWN INDICATION
  2. MOTEGRITY [Suspect]
     Active Substance: PRUCALOPRIDE SUCCINATE
     Indication: CONSTIPATION
     Dosage: 1 MILLIGRAM, 1X/DAY:QD
     Route: 048
     Dates: start: 20200122

REACTIONS (8)
  - Condition aggravated [Not Recovered/Not Resolved]
  - Nausea [Unknown]
  - Wrong technique in product usage process [Not Recovered/Not Resolved]
  - Malaise [Unknown]
  - Oropharyngeal discomfort [Unknown]
  - Dyspnoea [Unknown]
  - Insurance issue [Unknown]
  - Back pain [Not Recovered/Not Resolved]

NARRATIVE: CASE EVENT DATE: 20200122
